FAERS Safety Report 6903022-1 (Version None)
Quarter: 2010Q3

REPORT INFORMATION
  Report Type: 
  Country: None (occurrence: None)
  Receive Date: 20100803
  Receipt Date: 20080720
  Transmission Date: 20110219
  Serious: No
  Sender: FDA-Public Use
  Company Number: US-PFIZER INC-2008061629

PATIENT
  Sex: Female
  Weight: 45.4 kg

DRUGS (4)
  1. LYRICA [Suspect]
     Indication: PAIN
     Dates: start: 20080701
  2. LYRICA [Suspect]
     Indication: HEADACHE
  3. TOPAMAX [Concomitant]
  4. DRUG, UNSPECIFIED [Concomitant]

REACTIONS (4)
  - FEELING DRUNK [None]
  - HEADACHE [None]
  - INTERVERTEBRAL DISC PROTRUSION [None]
  - MENTAL IMPAIRMENT [None]
